FAERS Safety Report 15936748 (Version 3)
Quarter: 2019Q1

REPORT INFORMATION
  Report Type: Report from Study
  Country: None (occurrence: CA)
  Receive Date: 20190208
  Receipt Date: 20190315
  Transmission Date: 20190417
  Serious: Yes (Hospitalization, Other)
  Sender: FDA-Public Use
  Company Number: CA-ABBVIE-19K-028-2655766-00

PATIENT
  Sex: Male

DRUGS (1)
  1. HUMIRA [Suspect]
     Active Substance: ADALIMUMAB
     Indication: CROHN^S DISEASE
     Route: 058
     Dates: start: 20110318, end: 201901

REACTIONS (4)
  - Crohn^s disease [Unknown]
  - Bladder disorder [Unknown]
  - Gastrointestinal obstruction [Unknown]
  - Drug ineffective [Unknown]
